FAERS Safety Report 7081738-7 (Version None)
Quarter: 2010Q4

REPORT INFORMATION
  Report Type: 
  Country: None (occurrence: None)
  Receive Date: 20101103
  Receipt Date: 20101021
  Transmission Date: 20110411
  Serious: Yes (Hospitalization)
  Sender: FDA-Public Use
  Company Number: US-ELI_LILLY_AND_COMPANY-US201010005434

PATIENT
  Sex: Female
  Weight: 53.6 kg

DRUGS (3)
  1. CETUXIMAB [Suspect]
     Indication: NON-SMALL CELL LUNG CANCER
     Dosage: 378 MG, OTHER
     Route: 042
     Dates: start: 20100428, end: 20100922
  2. GEMCITABINE HCL [Suspect]
     Indication: NON-SMALL CELL LUNG CANCER
     Dosage: 1133 MG, OTHER
     Route: 042
     Dates: start: 20100428, end: 20100922
  3. CARBOPLATIN [Suspect]
     Indication: NON-SMALL CELL LUNG CANCER
     Dosage: 416 MG, OTHER
     Route: 042
     Dates: start: 20100428

REACTIONS (1)
  - PNEUMONIA [None]
